FAERS Safety Report 10038303 (Version 3)
Quarter: 2014Q2

REPORT INFORMATION
  Report Type: Report from Study
  Country: DE (occurrence: DE)
  Receive Date: 20140326
  Receipt Date: 20140501
  Transmission Date: 20141212
  Serious: Yes (Hospitalization)
  Sender: FDA-Public Use
  Company Number: DE-BAYER-2014-012992

PATIENT
  Sex: Male
  Weight: 96 kg

DRUGS (10)
  1. ALPHARADIN [Suspect]
     Indication: HORMONE-REFRACTORY PROSTATE CANCER
     Dosage: UNK
     Route: 042
     Dates: start: 20131002
  2. ALPHARADIN [Suspect]
     Indication: METASTASES TO BONE
  3. PREDNISOLON [Concomitant]
     Indication: SUPPORTIVE CARE
     Dosage: 5 MG, TID
     Route: 048
     Dates: start: 201203
  4. TORASEMID [Concomitant]
     Indication: HYPERTENSION
     Dosage: 5 MG, QD
     Route: 048
     Dates: start: 201306
  5. METOPROLOL [Concomitant]
     Indication: HYPERTENSION
     Dosage: 50 MG, BID
     Route: 048
     Dates: start: 1998
  6. ASS [Concomitant]
     Indication: HYPERTENSION
     Dosage: 100 MG, QD
     Route: 048
     Dates: start: 2009
  7. ALLOPURINOL [Concomitant]
     Indication: HYPERCHOLESTEROLAEMIA
     Dosage: 300 MG, QD
     Route: 048
     Dates: start: 2003
  8. SIMVASTATIN [Concomitant]
     Indication: HYPERLIPIDAEMIA
     Dosage: 20 MG, QD
     Route: 048
     Dates: start: 2003
  9. AMPHO MORONAL [Concomitant]
     Indication: DRY MOUTH
     Dosage: TOTAL DAILY DOSE: AS NEED PRN
     Route: 048
     Dates: start: 20131008
  10. LACTULOSE [Concomitant]
     Indication: CONSTIPATION
     Dosage: TOTAL DAILY DOSE: AS NEEDED PRN
     Route: 048
     Dates: start: 20131008

REACTIONS (1)
  - Fall [Recovered/Resolved]
